FAERS Safety Report 7446034-4 (Version None)
Quarter: 2011Q2

REPORT INFORMATION
  Report Type: 
  Country: None (occurrence: None)
  Receive Date: 20110429
  Receipt Date: 20110426
  Transmission Date: 20111010
  Serious: Yes (Death)
  Sender: FDA-Public Use
  Company Number: CN-GENZYME-FLUD-1000545

PATIENT
  Sex: Female
  Weight: 52 kg

DRUGS (3)
  1. CYTARABINE [Suspect]
     Indication: ACUTE MYELOID LEUKAEMIA
     Dosage: 2 G/M2, QD
     Route: 065
     Dates: start: 20101109, end: 20101113
  2. NEUPOGEN [Suspect]
     Indication: ACUTE MYELOID LEUKAEMIA
     Dosage: 200 MCG/M2, QD
     Route: 065
     Dates: start: 20101109, end: 20101113
  3. FLUDARA [Suspect]
     Indication: ACUTE MYELOID LEUKAEMIA
     Dosage: 30 MG/M2, QD
     Route: 065
     Dates: start: 20101109, end: 20101113

REACTIONS (3)
  - LUNG INFECTION [None]
  - RESPIRATORY FAILURE [None]
  - PYREXIA [None]
